FAERS Safety Report 15380139 (Version 3)
Quarter: 2020Q1

REPORT INFORMATION
  Report Type: Report from Study
  Country: US (occurrence: US)
  Receive Date: 20180913
  Receipt Date: 20200330
  Transmission Date: 20200409
  Serious: Yes (Hospitalization, Other)
  Sender: FDA-Public Use
  Company Number: US-ASTELLAS-2018US018427

PATIENT
  Age: 81 Year
  Sex: Male

DRUGS (4)
  1. ENZALUTAMIDE [Suspect]
     Active Substance: ENZALUTAMIDE
     Indication: PROSTATE CANCER
     Route: 048
     Dates: start: 20180330
  2. ENZALUTAMIDE [Suspect]
     Active Substance: ENZALUTAMIDE
     Route: 048
  3. ENZALUTAMIDE [Suspect]
     Active Substance: ENZALUTAMIDE
     Route: 048
  4. ENZALUTAMIDE [Suspect]
     Active Substance: ENZALUTAMIDE
     Route: 048

REACTIONS (13)
  - Arthralgia [Unknown]
  - Asthenia [Unknown]
  - Fall [Not Recovered/Not Resolved]
  - Joint swelling [Recovering/Resolving]
  - Muscular weakness [Not Recovered/Not Resolved]
  - Musculoskeletal stiffness [Unknown]
  - Impaired healing [Unknown]
  - Movement disorder [Unknown]
  - Hip fracture [Unknown]
  - Peripheral swelling [Recovering/Resolving]
  - Tooth loss [Unknown]
  - Prostatic specific antigen abnormal [Unknown]
  - Fatigue [Unknown]

NARRATIVE: CASE EVENT DATE: 20180413
